FAERS Safety Report 5869619-5 (Version None)
Quarter: 2008Q3

REPORT INFORMATION
  Report Type: 
  Country: None (occurrence: None)
  Receive Date: 20080904
  Receipt Date: 20080614
  Transmission Date: 20090109
  Serious: No
  Sender: FDA-Public Use
  Company Number: US-KINGPHARMUSA00001-K200800718

PATIENT

DRUGS (3)
  1. CYTOMEL [Suspect]
     Indication: THYROIDECTOMY
     Dosage: 5 MCG, TID
     Route: 048
     Dates: end: 20080610
  2. SYNTHROID [Concomitant]
     Indication: THYROIDECTOMY
     Dosage: 112 MG, QD
     Dates: end: 20080610
  3. TOPROL-XL [Concomitant]
     Indication: HYPERTENSION
     Dosage: 25 MG, QD
     Dates: start: 20070601

REACTIONS (4)
  - FEELING ABNORMAL [None]
  - HOT FLUSH [None]
  - PALPITATIONS [None]
  - SYNCOPE [None]
